FAERS Safety Report 11527677 (Version 1)
Quarter: 2015Q3

REPORT INFORMATION
  Report Type: Spontaneous
  Country: US (occurrence: US)
  Receive Date: 20150903
  Receipt Date: 20150903
  Transmission Date: 20151125
  Serious: No
  Sender: FDA-Public Use
  Company Number: US-ELI_LILLY_AND_COMPANY-US200905001799

PATIENT
  Sex: Female

DRUGS (2)
  1. HUMALOG MIX75/25 [Suspect]
     Active Substance: INSULIN LISPRO
     Dosage: 40 U, 2/D
     Dates: start: 2008
  2. CORGARD [Concomitant]
     Active Substance: NADOLOL
     Indication: CARDIAC DISORDER

REACTIONS (4)
  - Cardiac valve disease [Unknown]
  - Cardiac disorder [Unknown]
  - Weight increased [Unknown]
  - Dyspnoea [Unknown]
